FAERS Safety Report 7072215-8 (Version None)
Quarter: 2010Q4

REPORT INFORMATION
  Report Type: 
  Country: None (occurrence: None)
  Receive Date: 20101029
  Receipt Date: 20100407
  Transmission Date: 20110411
  Serious: Yes (Hospitalization)
  Sender: FDA-Public Use
  Company Number: A0836213A

PATIENT
  Age: 82 Year
  Sex: Male

DRUGS (4)
  1. ADVAIR DISKUS 100/50 [Suspect]
     Indication: ASTHMA
     Dosage: 1PUFF TWICE PER DAY
     Route: 055
     Dates: start: 20071201
  2. LANTUS [Concomitant]
     Dosage: 40UNIT UNKNOWN
     Route: 042
  3. NOVOLOG [Concomitant]
     Route: 042
  4. OXYGEN [Concomitant]
     Route: 045

REACTIONS (3)
  - DRUG INEFFECTIVE [None]
  - DYSPNOEA [None]
  - HYPERGLYCAEMIA [None]
